FAERS Safety Report 5815225-8 (Version None)
Quarter: 2008Q3

REPORT INFORMATION
  Report Type: 
  Country: None (occurrence: None)
  Receive Date: 20080718
  Receipt Date: 20080704
  Transmission Date: 20090109
  Serious: Yes (Hospitalization)
  Sender: FDA-Public Use
  Company Number: FR-GENENTECH-264318

PATIENT
  Sex: Male

DRUGS (3)
  1. AVASTIN [Suspect]
     Indication: LUNG ADENOCARCINOMA
     Dosage: 7.5 MG/KG, UNK
     Route: 042
     Dates: start: 20080205, end: 20080205
  2. TAXOTERE [Suspect]
     Indication: LUNG ADENOCARCINOMA
     Dosage: 75 MG/M2, UNK
     Route: 042
     Dates: start: 20080205, end: 20080205
  3. CISPLATIN [Suspect]
     Indication: LUNG ADENOCARCINOMA
     Dosage: 75 MG/M2, UNK
     Route: 042
     Dates: start: 20080205, end: 20080205

REACTIONS (1)
  - ATRIAL FIBRILLATION [None]
